FAERS Safety Report 4312326-0 (Version None)
Quarter: 2004Q1

REPORT INFORMATION
  Report Type: 
  Country: None (occurrence: None)
  Receive Date: 20040305
  Receipt Date: 20040302
  Transmission Date: 20041129
  Serious: Yes (Hospitalization)
  Sender: FDA-Public Use
  Company Number: FR-GLAXOSMITHKLINE-B0325280A

PATIENT
  Age: 39 Year
  Sex: Female

DRUGS (2)
  1. AUGMENTIN [Suspect]
     Indication: INFECTION
     Route: 042
     Dates: start: 20020801, end: 20020801
  2. ZINNAT [Concomitant]
     Indication: INFECTION
     Route: 065
     Dates: start: 20020101, end: 20020101

REACTIONS (4)
  - BRONCHOSPASM [None]
  - CHEST DISCOMFORT [None]
  - DYSGEUSIA [None]
  - DYSPNOEA [None]
